FAERS Safety Report 4696480-7 (Version None)
Quarter: 2005Q2

REPORT INFORMATION
  Report Type: 
  Country: None (occurrence: None)
  Receive Date: 20050608
  Receipt Date: 20050131
  Transmission Date: 20051028
  Serious: Yes (Life-Threatening, Hospitalization)
  Sender: FDA-Public Use
  Company Number: A03200500305

PATIENT
  Age: 62 Year
  Sex: Male
  Weight: 59.8748 kg

DRUGS (14)
  1. ELOXATIN [Suspect]
     Indication: COLORECTAL CANCER METASTATIC
     Dosage: 100 MG Q2W - INTRAVENOUS NOS
     Route: 042
     Dates: start: 20050124, end: 20050124
  2. HYDROCORTISONE SODIUM SUCCINATE [Concomitant]
  3. FLUOROURACIL [Concomitant]
  4. LEUCOVORIN [Concomitant]
  5. HYDROCORTISONE SODIUM SUCCINATE [Concomitant]
  6. PALONOSETRON [Concomitant]
  7. FINASTERIDE [Concomitant]
  8. ESOMEPRAZOLE [Concomitant]
  9. OXYCODONE HCL [Concomitant]
  10. PROCHLORPERAZINE EDISYLATE [Concomitant]
  11. HYDROXYZINE HYDROCLORIDE [Concomitant]
  12. DIPHENHYDRAMINE HCL [Concomitant]
  13. TEMAZEPAM [Concomitant]
  14. DOLASETRON MESILATE [Concomitant]

REACTIONS (5)
  - EPISTAXIS [None]
  - GINGIVAL BLEEDING [None]
  - HAEMATEMESIS [None]
  - HAEMOPTYSIS [None]
  - THROMBOCYTOPENIA [None]
